FAERS Safety Report 7057624-5 (Version None)
Quarter: 2010Q4

REPORT INFORMATION
  Report Type: 
  Country: None (occurrence: None)
  Receive Date: 20101022
  Receipt Date: 20101019
  Transmission Date: 20110411
  Serious: Yes (Other)
  Sender: FDA-Public Use
  Company Number: SE-PFIZER INC-2010132196

PATIENT
  Age: 40 Year
  Sex: Male

DRUGS (1)
  1. PREDNISOLON [Suspect]
     Indication: ANKYLOSING SPONDYLITIS
     Dosage: UNK
     Dates: end: 20101003

REACTIONS (3)
  - CORNEAL OPACITY [None]
  - OSTEOGENESIS IMPERFECTA [None]
  - SPINAL COMPRESSION FRACTURE [None]
